FAERS Safety Report 7373163-6 (Version None)
Quarter: 2011Q1

REPORT INFORMATION
  Report Type: 
  Country: None (occurrence: None)
  Receive Date: 20110315
  Receipt Date: 20110221
  Transmission Date: 20110831
  Serious: Yes (Hospitalization)
  Sender: FDA-Public Use
  Company Number: BR-001553

PATIENT
  Sex: Male
  Weight: 28 kg

DRUGS (1)
  1. NAGLAZYME [Suspect]
     Indication: MUCOPOLYSACCHARIDOSIS VI
     Dosage: (0.9 MG/KG 1X/WEEK INTRAVENOUS DRIP)
     Route: 041

REACTIONS (3)
  - VOMITING [None]
  - DEHYDRATION [None]
  - DIARRHOEA [None]
